FAERS Safety Report 4354419-8 (Version None)
Quarter: 2004Q2

REPORT INFORMATION
  Report Type: 
  Country: None (occurrence: None)
  Receive Date: 20040503
  Receipt Date: 20040331
  Transmission Date: 20050107
  Serious: Yes (Hospitalization)
  Sender: FDA-Public Use
  Company Number: SUS1-2004-00201

PATIENT
  Age: 44 Year
  Sex: Male

DRUGS (3)
  1. PENTASA [Suspect]
     Indication: COLITIS ULCERATIVE
     Dosage: ORAL
     Route: 048
  2. COTAREG ^NOVARTIS^ (HYDROCHLOROTHIAZIDE, VALSARTAN) TABLET [Concomitant]
  3. FERROUS SULFATE (FERROUS SULFATE) TABLET [Concomitant]

REACTIONS (5)
  - BACK PAIN [None]
  - BLOOD CREATINE PHOSPHOKINASE INCREASED [None]
  - MYALGIA [None]
  - MYOGLOBIN BLOOD INCREASED [None]
  - TROPONIN INCREASED [None]
